FAERS Safety Report 9003350 (Version 1)
Quarter: 2013Q1

REPORT INFORMATION
  Report Type: Spontaneous
  Country: US (occurrence: US)
  Receive Date: 20130108
  Receipt Date: 20130108
  Transmission Date: 20140127
  Serious: Yes (Other)
  Sender: FDA-Public Use
  Company Number: CHPA2012US026141

PATIENT
  Sex: Male

DRUGS (1)
  1. PRIVATE LABEL [Suspect]
     Dosage: UNK, UNK
     Route: 062

REACTIONS (1)
  - Cerebrovascular accident [Unknown]
